FAERS Safety Report 6308171-7 (Version None)
Quarter: 2009Q3

REPORT INFORMATION
  Report Type: 
  Country: None (occurrence: None)
  Receive Date: 20090813
  Receipt Date: 20090805
  Transmission Date: 20100115
  Serious: Yes (Other)
  Sender: FDA-Public Use
  Company Number: NZ-ABBOTT-09P-118-0589469-00

PATIENT
  Sex: Male

DRUGS (5)
  1. EPILIM TABLETS [Suspect]
     Indication: DRUG USE FOR UNKNOWN INDICATION
     Route: 048
     Dates: start: 20080201, end: 20080601
  2. EPILIM TABLETS [Suspect]
     Route: 048
     Dates: start: 20080601, end: 20090301
  3. EPILIM TABLETS [Suspect]
     Route: 048
     Dates: start: 20090301, end: 20090501
  4. EPILIM TABLETS [Suspect]
     Route: 048
     Dates: start: 20090501
  5. IRESSA [Concomitant]
     Indication: LUNG NEOPLASM MALIGNANT

REACTIONS (1)
  - CONVULSION [None]
